FAERS Safety Report 5069735-4 (Version None)
Quarter: 2006Q3

REPORT INFORMATION
  Report Type: 
  Country: None (occurrence: None)
  Receive Date: 20060714
  Receipt Date: 20060405
  Transmission Date: 20061208
  Serious: No
  Sender: FDA-Public Use
  Company Number: 2006SP001545

PATIENT
  Age: 61 Year
  Sex: Female
  Weight: 76.6579 kg

DRUGS (7)
  1. LUNESTA [Suspect]
     Indication: INSOMNIA
     Dosage: 2 MG;HS;ORAL
     Route: 048
     Dates: start: 20060404
  2. SYNTHROID [Concomitant]
  3. RELAFEN [Concomitant]
  4. ZYRTEC [Concomitant]
  5. WELLBUTRIN [Concomitant]
  6. CYMBALTA [Concomitant]
  7. AMBIEN [Concomitant]

REACTIONS (2)
  - INSOMNIA [None]
  - SLEEP DISORDER [None]
